FAERS Safety Report 10074612 (Version 1)
Quarter: 2014Q2

REPORT INFORMATION
  Report Type: Spontaneous
  Country: US (occurrence: US)
  Receive Date: 20140414
  Receipt Date: 20140414
  Transmission Date: 20141212
  Serious: Yes (Other)
  Sender: FDA-Public Use
  Company Number: US-MYLANLABS-2014S1008461

PATIENT
  Age: 56 Year
  Sex: Male

DRUGS (3)
  1. FLUPHENAZINE HYDROCHLORIDE TABLETS, USP [Suspect]
  2. BUPROPION [Suspect]
  3. PROPRANOLOL [Suspect]

REACTIONS (4)
  - Cerebrovascular accident [Not Recovered/Not Resolved]
  - Dyspnoea [Not Recovered/Not Resolved]
  - Angina pectoris [Not Recovered/Not Resolved]
  - Gastric disorder [Not Recovered/Not Resolved]
